FAERS Safety Report 8578235-6 (Version None)
Quarter: 2012Q3

REPORT INFORMATION
  Report Type: 
  Country: None (occurrence: None)
  Receive Date: 20120808
  Receipt Date: 20120802
  Transmission Date: 20120928
  Serious: No
  Sender: FDA-Public Use
  Company Number: US-PFIZER INC-2012188959

PATIENT
  Age: 53 Year
  Sex: Female
  Weight: 81.633 kg

DRUGS (11)
  1. METOPROLOL TARTRATE [Concomitant]
     Indication: HYPERTENSION
     Dosage: 50 MG, 2X/DAY
  2. XANAX [Concomitant]
     Indication: PANIC DISORDER
     Dosage: 1 MG, 2X/DAY
  3. LYRICA [Suspect]
     Indication: DIABETIC NEUROPATHY
  4. XANAX [Concomitant]
     Indication: ANXIETY
  5. FLEXERIL [Concomitant]
     Indication: MUSCLE RELAXANT THERAPY
     Dosage: 10 MG, AS NEEDED
  6. PRAVASTATIN [Concomitant]
     Indication: BLOOD CHOLESTEROL INCREASED
     Dosage: 40 MG,DAILY
  7. NAPROXEN [Concomitant]
     Indication: PAIN
     Dosage: 500 MG, AS NEEDED
  8. LYRICA [Suspect]
     Indication: FIBROMYALGIA
     Dosage: 75 MG, 2X/DAY
     Route: 048
     Dates: end: 20120715
  9. LANTUS [Concomitant]
     Indication: DIABETES MELLITUS
     Dosage: 60 IU,DAILY
  10. GEMFIBROZIL [Concomitant]
     Indication: BLOOD CHOLESTEROL INCREASED
     Dosage: 600 MG,DAILY
  11. ZOLOFT [Concomitant]
     Indication: DEPRESSION
     Dosage: 50 MG,DAILY

REACTIONS (2)
  - PAIN [None]
  - BLOOD GLUCOSE INCREASED [None]
